FAERS Safety Report 14982635 (Version 1)
Quarter: 2018Q2

REPORT INFORMATION
  Report Type: Spontaneous
  Country: US (occurrence: US)
  Receive Date: 20180515
  Receipt Date: 20180515
  Transmission Date: 20180711
  Serious: Yes (Other)
  Sender: FDA-Public Use
  Company Number: None

PATIENT
  Age: 58 Year
  Sex: Female
  Weight: 81.65 kg

DRUGS (12)
  1. OMEPRAZOLE. [Concomitant]
     Active Substance: OMEPRAZOLE
  2. LEVOTHYROXINE. [Concomitant]
     Active Substance: LEVOTHYROXINE
  3. TYLENOL [Concomitant]
     Active Substance: ACETAMINOPHEN
  4. CITALOPRAM [Concomitant]
     Active Substance: CITALOPRAM HYDROBROMIDE
  5. METOPROLOL. [Concomitant]
     Active Substance: METOPROLOL
  6. OMEPRAZOLE. [Concomitant]
     Active Substance: OMEPRAZOLE
  7. LEVOFLOXACIN. [Concomitant]
     Active Substance: LEVOFLOXACIN
  8. IBUPROFEN. [Concomitant]
     Active Substance: IBUPROFEN
  9. LEVOFLOXACIN 500MG TABLETS ONE TABLET DAILY [Suspect]
     Active Substance: LEVOFLOXACIN
     Indication: PNEUMONIA
     Dosage: ?          QUANTITY:7 DF DOSAGE FORM;?
     Route: 048
     Dates: start: 20180430, end: 20180505
  10. PRAVASTATIN. [Concomitant]
     Active Substance: PRAVASTATIN
  11. TRAMADOL. [Concomitant]
     Active Substance: TRAMADOL
  12. LEVOTHYROXINE. [Concomitant]
     Active Substance: LEVOTHYROXINE

REACTIONS (7)
  - Self-injurious ideation [None]
  - Panic disorder [None]
  - Depression [None]
  - Anxiety [None]
  - Crying [None]
  - Feeling of despair [None]
  - Negative thoughts [None]

NARRATIVE: CASE EVENT DATE: 20180505
